FAERS Safety Report 18570378 (Version 1)
Quarter: 2020Q4

REPORT INFORMATION
  Report Type: Report from Study
  Country: US (occurrence: US)
  Receive Date: 20201202
  Receipt Date: 20201202
  Transmission Date: 20210114
  Serious: Yes (Hospitalization)
  Sender: FDA-Public Use
  Company Number: US-GW PHARMA-201704USGW0228

PATIENT

DRUGS (35)
  1. EPIDIOLEX [Suspect]
     Active Substance: CANNABIDIOL
     Dosage: 15 MG/KG, 1329 MILLIGRAM, QD
     Route: 048
     Dates: start: 20170502, end: 20170506
  2. ZONEGRAM [Concomitant]
     Dosage: 700 MILLIGRAM, QD
     Route: 048
     Dates: start: 20170222, end: 20170321
  3. ONFI [Concomitant]
     Active Substance: CLOBAZAM
     Indication: EPILEPSY
     Dosage: 70 MILLIGRAM, QD
     Route: 048
     Dates: start: 20150401, end: 20151008
  4. ONFI [Concomitant]
     Active Substance: CLOBAZAM
     Dosage: 60 MILLIGRAM, QD
     Route: 048
     Dates: start: 20151009, end: 20151017
  5. MEDROXYPROGESTERONE [Concomitant]
     Active Substance: MEDROXYPROGESTERONE
     Indication: PRODUCT USED FOR UNKNOWN INDICATION
     Dosage: 200 MILLIGRAM, 1 IN 2 MONTHS
     Dates: start: 201502
  6. OXYBUTYNIN. [Concomitant]
     Active Substance: OXYBUTYNIN CHLORIDE
     Indication: PRODUCT USED FOR UNKNOWN INDICATION
     Dosage: NIGHTLY
     Route: 048
     Dates: start: 20130208
  7. MOTRIN [Concomitant]
     Active Substance: IBUPROFEN
     Dosage: 200 MILLIGRAM, PRN
     Route: 048
     Dates: start: 20170319, end: 20170319
  8. DITROPAN XL [Concomitant]
     Active Substance: OXYBUTYNIN CHLORIDE
     Indication: AUTOMATIC BLADDER
     Dosage: EVENING
     Route: 048
     Dates: start: 20130208
  9. EPIDIOLEX [Suspect]
     Active Substance: CANNABIDIOL
     Dosage: 12.5 MG/KG, 1107.5 MILLIGRAM, QD
     Route: 048
     Dates: start: 20170519
  10. FAMOTIDINE. [Concomitant]
     Active Substance: FAMOTIDINE
     Indication: PRODUCT USED FOR UNKNOWN INDICATION
     Dosage: 40 MILLIGRAM, BID
     Route: 048
     Dates: start: 20161216, end: 20170426
  11. ONFI [Concomitant]
     Active Substance: CLOBAZAM
     Dosage: 40 MILLIGRAM, QD
     Route: 048
     Dates: start: 20170417
  12. ZOFRAN [Concomitant]
     Active Substance: ONDANSETRON HYDROCHLORIDE
     Indication: VOMITING
     Dosage: 4 MILLIGRAM, PRN
     Route: 048
     Dates: start: 20170407, end: 20170409
  13. TAMIFLU [Concomitant]
     Active Substance: OSELTAMIVIR PHOSPHATE
     Indication: INFLUENZA
     Dosage: 75 MILLIGRAM, BID
     Route: 048
     Dates: start: 20170401, end: 20170405
  14. PEPCID [Concomitant]
     Active Substance: FAMOTIDINE
     Indication: GASTROOESOPHAGEAL REFLUX DISEASE
     Dosage: 40 MILLIGRAM, BID
     Route: 048
     Dates: start: 20161216, end: 20170426
  15. MIRAIAX [Concomitant]
     Indication: CONSTIPATION
     Dosage: 17 GRAM, PRN
     Route: 048
     Dates: start: 20160225
  16. KEPPRA [Concomitant]
     Active Substance: LEVETIRACETAM
     Indication: EPILEPSY
     Dosage: 500 MILLIGRAM, BID
     Route: 048
     Dates: start: 20170419, end: 20170425
  17. KEPPRA [Concomitant]
     Active Substance: LEVETIRACETAM
     Dosage: 500 MILLIGRAM, BID
     Route: 048
     Dates: start: 20170430, end: 20170430
  18. ZONEGRAM [Concomitant]
     Indication: EPILEPSY
     Dosage: 600 MILLIGRAM, QD
     Route: 048
     Dates: start: 2003, end: 20170221
  19. ZYRTEC [Concomitant]
     Active Substance: CETIRIZINE HYDROCHLORIDE
     Indication: SNEEZING
     Dosage: 10 MILLIGRAM, BID
     Route: 048
     Dates: start: 20170402, end: 20170402
  20. MOTRIN [Concomitant]
     Active Substance: IBUPROFEN
     Indication: PYREXIA
     Dosage: 600 MILLIGRAM, PRN
     Route: 048
     Dates: start: 20170331, end: 20170402
  21. DEPO-PROVERA [Concomitant]
     Active Substance: MEDROXYPROGESTERONE ACETATE
     Indication: CONTRACEPTION
     Dosage: 200 MILLIGRAM, 1 IN 8 WEEKS
     Route: 030
     Dates: start: 201502
  22. EPIDIOLEX [Suspect]
     Active Substance: CANNABIDIOL
     Dosage: 13.5 MG/KG, 1218.25 MILLIGRAM, QD
     Route: 048
     Dates: start: 20170507, end: 20170518
  23. KEPPRA [Concomitant]
     Active Substance: LEVETIRACETAM
     Dosage: 500MG AND 1000MG
     Route: 048
     Dates: start: 20170426, end: 20170429
  24. ZONEGRAM [Concomitant]
     Dosage: 800 MILLIGRAM, QD
     Route: 048
     Dates: start: 20170322, end: 20170406
  25. ONFI [Concomitant]
     Active Substance: CLOBAZAM
     Dosage: 40 MILLIGRAM, QD
     Route: 048
     Dates: start: 20161103, end: 20170409
  26. TYLENOL [Concomitant]
     Active Substance: ACETAMINOPHEN
     Dosage: 650 MILLIGRAM, 1 IN 1 ONCE
     Route: 048
     Dates: start: 20170222, end: 20170222
  27. ONFI [Concomitant]
     Active Substance: CLOBAZAM
     Dosage: 45 MILLIGRAM, QD
     Route: 048
     Dates: start: 20170410, end: 20170412
  28. DIAZEPAM. [Concomitant]
     Active Substance: DIAZEPAM
     Indication: PRODUCT USED FOR UNKNOWN INDICATION
     Dosage: 20 MILLIGRAM, QD
     Route: 054
  29. TYLENOL [Concomitant]
     Active Substance: ACETAMINOPHEN
     Indication: PYREXIA
     Dosage: 1000 MILLIGRAM, PRN
     Route: 048
     Dates: start: 20170331, end: 20170402
  30. CYANOCOBA LAMIN [Concomitant]
     Indication: HYPOVITAMINOSIS
     Dosage: 1000 MILLIGRAM, QD
     Route: 048
     Dates: start: 201404
  31. EPIDIOLEX [Suspect]
     Active Substance: CANNABIDIOL
     Indication: SEVERE MYOCLONIC EPILEPSY OF INFANCY
     Dosage: 17.5 MG/KG, 1550.5 MILLIGRAM, QD
     Route: 048
     Dates: start: 20150909, end: 20170501
  32. ZONEGRAM [Concomitant]
     Dosage: 600 MILLIGRAM, QD
     Route: 048
     Dates: start: 20170407
  33. ONFI [Concomitant]
     Active Substance: CLOBAZAM
     Dosage: 50 MILLIGRAM, QD
     Route: 048
     Dates: start: 20151018, end: 20161102
  34. ONFI [Concomitant]
     Active Substance: CLOBAZAM
     Dosage: 50 MILLIGRAM, QD
     Route: 048
     Dates: start: 20170413, end: 20170416
  35. TYLENOL [Concomitant]
     Active Substance: ACETAMINOPHEN
     Indication: BODY TEMPERATURE INCREASED
     Dosage: 500 MILLIGRAM, PRN
     Route: 048
     Dates: start: 20170318, end: 20170319

REACTIONS (1)
  - Dyskinesia [Recovered/Resolved]

NARRATIVE: CASE EVENT DATE: 20170411
